FAERS Safety Report 11174843 (Version 1)
Quarter: 2015Q2

REPORT INFORMATION
  Report Type: Spontaneous
  Country: US (occurrence: None)
  Receive Date: 20150608
  Receipt Date: 20150608
  Transmission Date: 20150821
  Serious: Yes (Other)
  Sender: FDA-Public Use
  Company Number: None

PATIENT
  Age: 55 Year
  Sex: Female
  Weight: 97.52 kg

DRUGS (9)
  1. NAPROXEN. [Concomitant]
     Active Substance: NAPROXEN
  2. PROBIOTIC [Concomitant]
     Active Substance: PROBIOTICS NOS
  3. CYCLOBENZAPRINE [Concomitant]
     Active Substance: CYCLOBENZAPRINE
  4. DULOXETINE 60MG TEVA [Suspect]
     Active Substance: DULOXETINE
     Indication: FIBROMYALGIA
     Route: 048
     Dates: start: 20150601, end: 20150606
  5. CRESTOR [Concomitant]
     Active Substance: ROSUVASTATIN CALCIUM
  6. METOPROLOL [Concomitant]
     Active Substance: METOPROLOL
  7. PROTONIX [Concomitant]
     Active Substance: PANTOPRAZOLE SODIUM
  8. MAGNESIUM [Concomitant]
     Active Substance: MAGNESIUM
  9. MULTIVITAMIN [Concomitant]
     Active Substance: VITAMINS

REACTIONS (5)
  - Insomnia [None]
  - Crying [None]
  - Product substitution issue [None]
  - Panic attack [None]
  - Depression [None]

NARRATIVE: CASE EVENT DATE: 20150606
